FAERS Safety Report 10005524 (Version 2)
Quarter: 2014Q1

REPORT INFORMATION
  Report Type: Spontaneous
  Country: US (occurrence: US)
  Receive Date: 20140313
  Receipt Date: 20140331
  Transmission Date: 20141002
  Serious: Yes (Other)
  Sender: FDA-Public Use
  Company Number: US-BEH-2014040944

PATIENT
  Sex: Male
  Weight: 29 kg

DRUGS (17)
  1. PRIVIGEN [Suspect]
     Dosage: 1 TIME DAILY X 2 DAYS
     Route: 042
  2. PRIVIGEN [Suspect]
     Dosage: 1 TIME DAILY X 2 DAYS
     Route: 042
  3. DEXAMETHASONE [Suspect]
  4. ZOLOFT [Concomitant]
  5. AMOX-TR-K CLV [Concomitant]
  6. MOTRIN [Concomitant]
  7. ACETAMINOPHEN [Concomitant]
  8. DIPHENHYDRAMINE [Concomitant]
  9. MELATONIN [Concomitant]
  10. OMEGA-3 WITH DHA [Concomitant]
  11. MULTI-VIT GUMMIES [Concomitant]
  12. CULTURELLE [Concomitant]
  13. ABILIFY [Concomitant]
  14. SODIUM CHLORIDE [Concomitant]
  15. HEPARIN [Concomitant]
  16. LIDOCAINE/PRILOCAINE [Concomitant]
  17. EPIPEN [Concomitant]

REACTIONS (4)
  - Aggression [Unknown]
  - Anger [Unknown]
  - Abnormal behaviour [Unknown]
  - Dizziness [Unknown]
